FAERS Safety Report 18300595 (Version 1)
Quarter: 2020Q3

REPORT INFORMATION
  Report Type: Spontaneous
  Country: US (occurrence: US)
  Receive Date: 20200923
  Receipt Date: 20200923
  Transmission Date: 20201103
  Serious: No
  Sender: FDA-Public Use
  Company Number: None

PATIENT
  Age: 57 Year
  Sex: Female
  Weight: 127.8 kg

DRUGS (6)
  1. LATANAPROST [Concomitant]
     Active Substance: LATANOPROST
  2. DILTIAZEM. [Concomitant]
     Active Substance: DILTIAZEM
  3. METFORMIN [Concomitant]
     Active Substance: METFORMIN HYDROCHLORIDE
  4. VIT B12, D, C [Concomitant]
  5. MAGNESIUM [Concomitant]
     Active Substance: MAGNESIUM
  6. WP THYROID [Suspect]
     Active Substance: THYROID, PORCINE
     Indication: HYPOTHYROIDISM
     Dosage: ?          QUANTITY:90 TABLET(S);?
     Route: 048
     Dates: start: 20200519, end: 20200922

REACTIONS (2)
  - Palpitations [None]
  - Lethargy [None]

NARRATIVE: CASE EVENT DATE: 20200901
